FAERS Safety Report 19792674 (Version 2)
Quarter: 2021Q3

REPORT INFORMATION
  Report Type: Spontaneous
  Country: NL (occurrence: NL)
  Receive Date: 20210906
  Receipt Date: 20210909
  Transmission Date: 20211014
  Serious: Yes (Other)
  Sender: FDA-Public Use
  Company Number: NL-MYLANLABS-2021M1058337

PATIENT
  Age: 64 Year
  Sex: Male
  Weight: 105 kg

DRUGS (6)
  1. LABETALOL [Suspect]
     Active Substance: LABETALOL\LABETALOL HYDROCHLORIDE
     Indication: HYPERTENSION
     Dosage: 3 TIMES DAILY 100MG
     Dates: start: 20210601
  2. ASTRAZENECA COVID?19 VACCINE [Concomitant]
     Active Substance: AZD-1222
     Dosage: UNK, INJECTION LIQUID
  3. ESOMEPRAZOL                        /01479301/ [Concomitant]
     Active Substance: ESOMEPRAZOLE
     Dosage: GASTRO?RESISTANT CAPSULE, 40 MG (MILLIGRAM)
  4. OCTREOTIDE. [Concomitant]
     Active Substance: OCTREOTIDE
     Dosage: INJECTION LIQUID, 0,05 MG/ML (MILLIGRAM PER MILLILITER)
  5. LABETALOL [Suspect]
     Active Substance: LABETALOL\LABETALOL HYDROCHLORIDE
     Indication: DUMPING SYNDROME
     Dosage: 3 TIMES DAILY 200MG
  6. PARACETAMOL [Concomitant]
     Active Substance: ACETAMINOPHEN
     Dosage: 1000MG 4 TIMES DAILY

REACTIONS (5)
  - Vision blurred [Not Recovered/Not Resolved]
  - Headache [Not Recovered/Not Resolved]
  - Arrhythmia [Not Recovered/Not Resolved]
  - Ventricular extrasystoles [Not Recovered/Not Resolved]
  - Myalgia [Not Recovered/Not Resolved]

NARRATIVE: CASE EVENT DATE: 20210706
